FAERS Safety Report 9310472 (Version 2)
Quarter: 2013Q3

REPORT INFORMATION
  Report Type: Spontaneous
  Country: US (occurrence: US)
  Receive Date: 20130527
  Receipt Date: 20130722
  Transmission Date: 20140515
  Serious: No
  Sender: FDA-Public Use
  Company Number: US-PFIZER INC-2013161030

PATIENT
  Age: 59 Year
  Sex: Male
  Weight: 100 kg

DRUGS (6)
  1. GABAPENTIN [Suspect]
     Indication: FIBROMYALGIA
     Dosage: 900 MG, 3X/DAY
     Dates: start: 201211
  2. LYRICA [Suspect]
     Indication: FIBROMYALGIA
     Dosage: 150 MG, 3X/DAY
     Dates: start: 201302
  3. NUVIGIL [Suspect]
     Indication: ROUTINE HEALTH MAINTENANCE
     Dosage: 400 MG, 1X/DAY
     Dates: start: 201212
  4. NUVIGIL [Suspect]
     Indication: FATIGUE
  5. SIMVASTATIN [Concomitant]
     Indication: BLOOD CHOLESTEROL INCREASED
     Dosage: 40 MG, 1X/DAY
     Dates: start: 2009
  6. ASPIRIN [Concomitant]
     Indication: CARDIAC DISORDER
     Dosage: 81 MG, UNK
     Dates: start: 2003

REACTIONS (2)
  - Fatigue [Recovering/Resolving]
  - Poor quality sleep [Unknown]
